FAERS Safety Report 25850426 (Version 1)
Quarter: 2025Q3

REPORT INFORMATION
  Report Type: Spontaneous
  Country: CN (occurrence: CN)
  Receive Date: 20250926
  Receipt Date: 20250926
  Transmission Date: 20251021
  Serious: Yes (Other)
  Sender: GE HEALTHCARE
  Company Number: None

PATIENT
  Age: 45 Year
  Sex: Male
  Weight: 72 kg

DRUGS (2)
  1. VISIPAQUE [Suspect]
     Active Substance: IODIXANOL
     Indication: Computerised tomogram head
     Route: 042
     Dates: start: 20250913, end: 20250913
  2. VISIPAQUE [Suspect]
     Active Substance: IODIXANOL
     Indication: Arteriogram carotid

REACTIONS (5)
  - Polyuria [Recovered/Resolved]
  - Face oedema [Recovered/Resolved]
  - Macule [Recovered/Resolved]
  - Pruritus [Recovered/Resolved]
  - Dermatitis allergic [Recovered/Resolved]

NARRATIVE: CASE EVENT DATE: 20250914
